FAERS Safety Report 5798953-2 (Version None)
Quarter: 2008Q3

REPORT INFORMATION
  Report Type: 
  Country: None (occurrence: None)
  Receive Date: 20080702
  Receipt Date: 20080627
  Transmission Date: 20090109
  Serious: Yes (Hospitalization, Other)
  Sender: FDA-Public Use
  Company Number: US-PFIZER INC-2005139348

PATIENT
  Sex: Female
  Weight: 47.2 kg

DRUGS (17)
  1. SILDENAFIL CITRATE [Suspect]
     Indication: PULMONARY HYPERTENSION
     Route: 048
  2. FLOLAN [Interacting]
     Indication: PULMONARY HYPERTENSION
     Dosage: TEXT:41.5 NG/KG/MIN
     Route: 042
  3. LASIX [Concomitant]
     Route: 048
  4. LEVAQUIN [Concomitant]
     Route: 048
  5. SPIRONOLACTONE [Concomitant]
     Route: 048
  6. LANOXIN [Concomitant]
     Route: 048
  7. PREVACID [Concomitant]
     Route: 048
  8. KLOR-CON [Concomitant]
     Route: 048
  9. PROMETHAZINE [Concomitant]
     Route: 048
  10. COUMADIN [Concomitant]
     Route: 048
  11. TYLENOL [Concomitant]
     Route: 048
  12. LOPERAMIDE HCL [Concomitant]
     Route: 048
  13. ZOFRAN [Concomitant]
     Route: 048
  14. LIBRAX [Concomitant]
     Route: 048
  15. DOXEPIN HCL [Concomitant]
     Route: 048
  16. FLUOCINONIDE [Concomitant]
     Route: 061
  17. PRILOSEC [Concomitant]
     Route: 048

REACTIONS (3)
  - DRUG INTERACTION [None]
  - NAUSEA [None]
  - VOMITING [None]
